FAERS Safety Report 25837583 (Version 1)
Quarter: 2025Q3

REPORT INFORMATION
  Report Type: Spontaneous
  Country: US (occurrence: None)
  Receive Date: 20250923
  Receipt Date: 20250923
  Transmission Date: 20251021
  Serious: Yes (Hospitalization, Other)
  Sender: FDA-CTU
  Company Number: None

PATIENT
  Age: 42 Year
  Sex: Male

DRUGS (4)
  1. CYANOCOBALAMIN\TOPIRAMATE [Suspect]
     Active Substance: CYANOCOBALAMIN\TOPIRAMATE
     Indication: Weight decreased
     Dosage: FREQUENCY : TWICE A DAY;?
     Route: 048
     Dates: start: 20250531, end: 20250922
  2. BUPROPION XL [Suspect]
     Active Substance: BUPROPION HYDROCHLORIDE
     Dates: start: 20250531, end: 20250922
  3. METFORMIN ER 500 MG [Suspect]
     Active Substance: METFORMIN HYDROCHLORIDE
     Dates: start: 20250531, end: 20250922
  4. sildenafil 50mg tablet [Concomitant]
     Dates: start: 20250630

REACTIONS (1)
  - Gastrointestinal disorder [None]

NARRATIVE: CASE EVENT DATE: 20250922
